FAERS Safety Report 25676275 (Version 2)
Quarter: 2025Q3

REPORT INFORMATION
  Report Type: Report from Study
  Country: US (occurrence: US)
  Receive Date: 20250813
  Receipt Date: 20250815
  Transmission Date: 20251021
  Serious: Yes (Hospitalization, Other)
  Sender: MALLINCKRODT
  Company Number: US-MALLINCKRODT-MNK202504812

PATIENT
  Age: 58 Year
  Sex: Female

DRUGS (3)
  1. CORTICOTROPIN [Suspect]
     Active Substance: CORTICOTROPIN
     Indication: Systemic lupus erythematosus
     Route: 058
     Dates: start: 202311
  2. BENLYSTA [Concomitant]
     Active Substance: BELIMUMAB
  3. ZARXIO [Concomitant]
     Active Substance: FILGRASTIM-SNDZ

REACTIONS (4)
  - Limb injury [Unknown]
  - Leukopenia [Unknown]
  - Cellulitis [Unknown]
  - Wound infection [Unknown]
